FAERS Safety Report 7423370-9 (Version None)
Quarter: 2011Q2

REPORT INFORMATION
  Report Type: 
  Country: None (occurrence: None)
  Receive Date: 20110419
  Receipt Date: 20110406
  Transmission Date: 20111010
  Serious: Yes (Other)
  Sender: FDA-Public Use
  Company Number: PHHY2011BE28055

PATIENT
  Sex: Female

DRUGS (2)
  1. EXFORGE [Suspect]
     Indication: HYPERTENSION
     Dosage: 5 MG VALS AND 160 MG AMLO, DAILY
     Route: 048
     Dates: start: 20110201, end: 20110310
  2. GALANTAMINE HYDROBROMIDE [Concomitant]
     Indication: DEMENTIA ALZHEIMER'S TYPE
     Dosage: 24 MG, UNK
     Dates: start: 20080101

REACTIONS (9)
  - TRANSAMINASES INCREASED [None]
  - DIZZINESS [None]
  - URINE COLOUR ABNORMAL [None]
  - INFLAMMATION [None]
  - LIVER FUNCTION TEST ABNORMAL [None]
  - FALL [None]
  - OCULAR ICTERUS [None]
  - MALAISE [None]
  - FAECES PALE [None]
